FAERS Safety Report 5515862-4 (Version None)
Quarter: 2007Q4

REPORT INFORMATION
  Report Type: 
  Country: None (occurrence: None)
  Receive Date: 20071109
  Receipt Date: 20071102
  Transmission Date: 20080405
  Serious: Yes (Hospitalization)
  Sender: FDA-Public Use
  Company Number: 2007-04933

PATIENT
  Age: 17 Year
  Sex: Female
  Weight: 60 kg

DRUGS (1)
  1. FIORINAL [Suspect]
     Indication: SUICIDAL IDEATION
     Dosage: 12.5 G ACETYLSALICYLIC ACID, ORAL
     Route: 048

REACTIONS (4)
  - DRUG TOXICITY [None]
  - FANCONI SYNDROME ACQUIRED [None]
  - INCORRECT DOSE ADMINISTERED [None]
  - SUICIDAL IDEATION [None]
